FAERS Safety Report 17204053 (Version 1)
Quarter: 2019Q4

REPORT INFORMATION
  Report Type: Spontaneous
  Country: US (occurrence: US)
  Receive Date: 20191226
  Receipt Date: 20191226
  Transmission Date: 20200122
  Serious: No
  Sender: FDA-Public Use
  Company Number: US-ABBVIE-19S-163-2758528-00

PATIENT
  Age: 11 Year
  Sex: Female

DRUGS (1)
  1. LUCRIN DEPOT-PED [Suspect]
     Active Substance: LEUPROLIDE ACETATE
     Indication: PRODUCT USED FOR UNKNOWN INDICATION
     Route: 030
     Dates: start: 201901

REACTIONS (3)
  - Pain in extremity [Recovered/Resolved]
  - Pyrexia [Recovered/Resolved]
  - Arthralgia [Recovered/Resolved]

NARRATIVE: CASE EVENT DATE: 201901
